FAERS Safety Report 17565448 (Version 1)
Quarter: 2020Q1

REPORT INFORMATION
  Report Type: Spontaneous
  Country: US (occurrence: US)
  Receive Date: 20200313
  Receipt Date: 20200313
  Transmission Date: 20200409
  Serious: Yes (Hospitalization)
  Sender: FDA-Public Use
  Company Number: None

PATIENT
  Age: 38 Year
  Sex: Female
  Weight: 48.9 kg

DRUGS (1)
  1. CISPLATIN. [Suspect]
     Active Substance: CISPLATIN
     Dates: end: 20200224

REACTIONS (8)
  - Anaemia [None]
  - Pain [None]
  - Back pain [None]
  - Constipation [None]
  - Diarrhoea [None]
  - Hydronephrosis [None]
  - Abdominal pain [None]
  - White blood cell count increased [None]

NARRATIVE: CASE EVENT DATE: 20200228
